FAERS Safety Report 24122595 (Version 1)
Quarter: 2024Q3

REPORT INFORMATION
  Report Type: Report from Study
  Country: US (occurrence: US)
  Receive Date: 20240723
  Receipt Date: 20240723
  Transmission Date: 20241016
  Serious: Yes (Other)
  Sender: BIOVITRUM
  Company Number: US-AstraZeneca-2020SE41200

PATIENT
  Sex: Male

DRUGS (1)
  1. SYNAGIS [Suspect]
     Active Substance: PALIVIZUMAB
     Indication: Product used for unknown indication
     Dosage: MONTHLY
     Route: 030

REACTIONS (4)
  - Hypoxia [Unknown]
  - Pyrexia [Unknown]
  - Bronchiolitis [Unknown]
  - Cough [Unknown]
